FAERS Safety Report 5103193-6 (Version None)
Quarter: 2006Q3

REPORT INFORMATION
  Report Type: 
  Country: None (occurrence: None)
  Receive Date: 20060912
  Receipt Date: 20060912
  Transmission Date: 20061208
  Serious: Yes (Hospitalization)
  Sender: FDA-Public Use
  Company Number: None

PATIENT
  Age: 56 Year
  Sex: Male
  Weight: 98.8842 kg

DRUGS (1)
  1. TIMOLOL MALEATE [Suspect]
     Dosage: 1 DROP IN BOTH EYES
     Dates: start: 20060725

REACTIONS (4)
  - CONJUNCTIVITIS INFECTIVE [None]
  - EYE INFECTION [None]
  - GLAUCOMA [None]
  - KERATITIS BACTERIAL [None]
